FAERS Safety Report 9451252 (Version 1)
Quarter: 2013Q3

REPORT INFORMATION
  Report Type: Spontaneous
  Country: US (occurrence: US)
  Receive Date: 20130809
  Receipt Date: 20130809
  Transmission Date: 20140515
  Serious: No
  Sender: FDA-Public Use
  Company Number: US-009507513-1307USA007595

PATIENT
  Age: 28 Year
  Sex: Female

DRUGS (4)
  1. REBETOL [Suspect]
     Dosage: 800 MG, QD
     Route: 048
     Dates: start: 200911, end: 20100916
  2. PEGINTERFERON ALFA-2B [Suspect]
     Dosage: 80 MICROGRAM, QW
     Dates: start: 200911, end: 20100916
  3. AMOXICILLIN [Concomitant]
     Indication: SINUSITIS
     Dosage: 1500 MG, QD
     Dates: start: 20101016, end: 201010
  4. VITAMINS (UNSPECIFIED) [Concomitant]
     Indication: PREGNANCY
     Dosage: 1 DF, UNK
     Dates: start: 20101017

REACTIONS (1)
  - Exposure during pregnancy [Recovered/Resolved]
